FAERS Safety Report 13376541 (Version 1)
Quarter: 2017Q1

REPORT INFORMATION
  Report Type: Spontaneous
  Country: US (occurrence: US)
  Receive Date: 20170327
  Receipt Date: 20170327
  Transmission Date: 20170429
  Serious: Yes (Hospitalization)
  Sender: FDA-Public Use
  Company Number: None

PATIENT
  Age: 70 Year
  Sex: Female

DRUGS (1)
  1. LETAIRIS [Suspect]
     Active Substance: AMBRISENTAN
     Indication: SCLERODERMA
     Route: 048
     Dates: start: 20170301

REACTIONS (3)
  - Haemoglobin decreased [None]
  - Gastrointestinal haemorrhage [None]
  - Haematocrit decreased [None]

NARRATIVE: CASE EVENT DATE: 20170321
